FAERS Safety Report 9596474 (Version 2)
Quarter: 2013Q4

REPORT INFORMATION
  Report Type: Spontaneous
  Country: US (occurrence: US)
  Receive Date: 20131004
  Receipt Date: 20131031
  Transmission Date: 20140711
  Serious: No
  Sender: FDA-Public Use
  Company Number: US-009507513-1309USA012801

PATIENT
  Sex: Female

DRUGS (3)
  1. JANUVIA [Suspect]
     Indication: TYPE 2 DIABETES MELLITUS
     Dosage: 100 MG TAKEN ONCE DAILY
     Route: 048
     Dates: start: 2012, end: 201309
  2. METFORMIN [Concomitant]
  3. ASPIRIN [Concomitant]

REACTIONS (3)
  - Glycosylated haemoglobin decreased [Recovering/Resolving]
  - Pruritus generalised [Recovering/Resolving]
  - Urticaria [Recovering/Resolving]
